FAERS Safety Report 9006168 (Version 1)
Quarter: 2013Q1

REPORT INFORMATION
  Report Type: Spontaneous
  Country: GB (occurrence: GB)
  Receive Date: 20130110
  Receipt Date: 20130110
  Transmission Date: 20140127
  Serious: Yes (Other)
  Sender: FDA-Public Use
  Company Number: GB-RANBAXY-2012R1-63838

PATIENT
  Age: 62 Year
  Sex: Male
  Weight: 95 kg

DRUGS (2)
  1. SIMVASTATIN [Suspect]
     Indication: PRODUCT USED FOR UNKNOWN INDICATION
     Dosage: 40 MG, QD
     Route: 048
     Dates: start: 20120531, end: 201209
  2. ASPIRIN [Concomitant]
     Indication: PRODUCT USED FOR UNKNOWN INDICATION
     Dosage: UNK
     Route: 065

REACTIONS (3)
  - Insomnia [Recovered/Resolved]
  - Memory impairment [Recovered/Resolved]
  - Neuropathy peripheral [Recovering/Resolving]
